FAERS Safety Report 4699353-9 (Version None)
Quarter: 2005Q2

REPORT INFORMATION
  Report Type: 
  Country: None (occurrence: None)
  Receive Date: 20050624
  Receipt Date: 20050613
  Transmission Date: 20051028
  Serious: Yes (Hospitalization)
  Sender: FDA-Public Use
  Company Number: US-MERCK-0506USA02138

PATIENT
  Age: 64 Year
  Sex: Male
  Weight: 111 kg

DRUGS (7)
  1. VIOXX [Suspect]
     Indication: ARTHRALGIA
     Route: 048
     Dates: start: 20010824, end: 20040901
  2. HYZAAR [Concomitant]
     Route: 065
     Dates: start: 20000101
  3. LIPITOR [Concomitant]
     Route: 065
     Dates: start: 20000101
  4. THEOPHYLLINE [Concomitant]
     Route: 065
  5. PREDNISONE [Concomitant]
     Route: 065
  6. FLOVENT [Concomitant]
     Route: 065
  7. SINGULAIR [Concomitant]
     Route: 065

REACTIONS (10)
  - ATRIAL FIBRILLATION [None]
  - CARDIAC FAILURE CONGESTIVE [None]
  - CARDIOMEGALY [None]
  - CARDIOMYOPATHY [None]
  - CORONARY ARTERY ATHEROSCLEROSIS [None]
  - DYSPEPSIA [None]
  - HYPOPROTHROMBINAEMIA [None]
  - MYOCARDIAL INFARCTION [None]
  - MYOCARDIAL ISCHAEMIA [None]
  - VENTRICULAR HYPERTROPHY [None]
